FAERS Safety Report 15474049 (Version 1)
Quarter: 2018Q4

REPORT INFORMATION
  Report Type: Spontaneous
  Country: US (occurrence: US)
  Receive Date: 20181008
  Receipt Date: 20181008
  Transmission Date: 20190205
  Serious: No
  Sender: FDA-Public Use
  Company Number: US-ELI_LILLY_AND_COMPANY-US201809012399

PATIENT
  Sex: Male

DRUGS (2)
  1. CIALIS [Suspect]
     Active Substance: TADALAFIL
     Dosage: 5 MG (0.5-1 TABLET), PRN BEFORE SEX
     Route: 048
  2. CIALIS [Suspect]
     Active Substance: TADALAFIL
     Indication: ERECTILE DYSFUNCTION
     Dosage: 5 MG (0.5-1 TABLET), PRN BEFORE SEX
     Route: 048
     Dates: start: 2013

REACTIONS (4)
  - Anorgasmia [Unknown]
  - Hypertension [Unknown]
  - Flushing [Recovered/Resolved]
  - Drug ineffective [Unknown]
